FAERS Safety Report 4771560-6 (Version None)
Quarter: 2005Q3

REPORT INFORMATION
  Report Type: 
  Country: None (occurrence: None)
  Receive Date: 20050914
  Receipt Date: 20050914
  Transmission Date: 20060218
  Serious: Yes (Life-Threatening, Hospitalization)
  Sender: FDA-Public Use
  Company Number: None

PATIENT
  Sex: Male
  Weight: 80.7403 kg

DRUGS (1)
  1. PACLITAXEL [Suspect]
     Indication: ADENOCARCINOMA
     Dosage: 150MG EVERY 3 WEEKS IV DRIP
     Route: 041
     Dates: start: 20050719, end: 20050719

REACTIONS (5)
  - CONVULSION [None]
  - HYPOTENSION [None]
  - INFUSION RELATED REACTION [None]
  - LOSS OF CONSCIOUSNESS [None]
  - RESPIRATION ABNORMAL [None]
